FAERS Safety Report 15447468 (Version 1)
Quarter: 2018Q3

REPORT INFORMATION
  Report Type: Spontaneous
  Country: US (occurrence: US)
  Receive Date: 20180928
  Receipt Date: 20180928
  Transmission Date: 20181010
  Serious: No
  Sender: FDA-Public Use
  Company Number: US-AMGEN-USASP2018117731

PATIENT
  Age: 68 Year
  Sex: Female

DRUGS (21)
  1. ASCORBIC ACID. [Concomitant]
     Active Substance: ASCORBIC ACID
  2. PANTOTHENIC ACID [Concomitant]
     Active Substance: PANTOTHENIC ACID
  3. RIBOFLAVIN [Concomitant]
     Active Substance: RIBOFLAVIN
  4. NICOTINAMIDE [Concomitant]
     Active Substance: NIACINAMIDE
  5. POTASSIUM CHLORIDE. [Concomitant]
     Active Substance: POTASSIUM CHLORIDE
  6. ERGOCALCIFEROL. [Concomitant]
     Active Substance: ERGOCALCIFEROL
  7. FISH OIL [Concomitant]
     Active Substance: FISH OIL
  8. PROLIA [Suspect]
     Active Substance: DENOSUMAB
     Indication: PRODUCT USED FOR UNKNOWN INDICATION
     Dosage: UNK
     Route: 065
  9. FOLIC ACID. [Concomitant]
     Active Substance: FOLIC ACID
  10. FERROUS FUMARATE [Concomitant]
     Active Substance: FERROUS FUMARATE
  11. MAGNESIUM OXIDE. [Concomitant]
     Active Substance: MAGNESIUM OXIDE
  12. CALCIUM [Concomitant]
     Active Substance: CALCIUM
  13. CUPRIC OXIDE [Concomitant]
  14. PYRIDOXINE HYDROCHLORIDE. [Concomitant]
     Active Substance: PYRIDOXINE HYDROCHLORIDE
  15. BIOTIN [Concomitant]
     Active Substance: BIOTIN
  16. THIAMINE MONONITRATE [Concomitant]
     Active Substance: THIAMINE MONONITRATE
  17. PHYTOMENADIONE [Concomitant]
     Active Substance: PHYTONADIONE
  18. TOCOPHERYL ACETATE [Concomitant]
     Active Substance: .ALPHA.-TOCOPHEROL ACETATE
  19. RETINOL [Concomitant]
     Active Substance: RETINOL
  20. CYANOCOBALAMIN. [Concomitant]
     Active Substance: CYANOCOBALAMIN
  21. ZINC OXIDE. [Concomitant]
     Active Substance: ZINC OXIDE

REACTIONS (4)
  - Arthralgia [Unknown]
  - Rash [Unknown]
  - Lichen planus [Unknown]
  - Myalgia [Unknown]
